FAERS Safety Report 13349657 (Version 1)
Quarter: 2017Q1

REPORT INFORMATION
  Report Type: Spontaneous
  Country: GB (occurrence: GB)
  Receive Date: 20170320
  Receipt Date: 20170320
  Transmission Date: 20170429
  Serious: Yes (Other)
  Sender: FDA-Public Use
  Company Number: GB-TORRENT-00015102

PATIENT
  Age: 60 Year
  Sex: Female
  Weight: 63 kg

DRUGS (2)
  1. BROWN + BURK SIMVASTATIN [Suspect]
     Active Substance: SIMVASTATIN
  2. AMLODIPINE [Interacting]
     Active Substance: AMLODIPINE BESYLATE

REACTIONS (5)
  - Drug interaction [Unknown]
  - Papule [Not Recovered/Not Resolved]
  - Product substitution issue [Unknown]
  - Renal pain [Not Recovered/Not Resolved]
  - Hypersensitivity vasculitis [Not Recovered/Not Resolved]

NARRATIVE: CASE EVENT DATE: 20170118
